FAERS Safety Report 18353413 (Version 1)
Quarter: 2020Q4

REPORT INFORMATION
  Report Type: Spontaneous
  Country: AT (occurrence: AT)
  Receive Date: 20201007
  Receipt Date: 20201007
  Transmission Date: 20210114
  Serious: Yes (Hospitalization)
  Sender: FDA-Public Use
  Company Number: AT-TEVA-2020-AT-1835471

PATIENT
  Age: 59 Year
  Sex: Female

DRUGS (2)
  1. PANTOLOC 20 MG - FILMTABLETTEN [Concomitant]
     Active Substance: PANTOPRAZOLE SODIUM
  2. DICLOBENE 50 MG - FILMTABLETTEN [Suspect]
     Active Substance: DICLOFENAC SODIUM
     Dosage: P.O.
     Route: 048
     Dates: start: 20191001, end: 20191001

REACTIONS (5)
  - Swollen tongue [Recovered/Resolved]
  - Nausea [Recovered/Resolved]
  - Type I hypersensitivity [Recovered/Resolved]
  - Rash [Recovered/Resolved]
  - Pruritus [Recovered/Resolved]

NARRATIVE: CASE EVENT DATE: 20191001
